FAERS Safety Report 10102150 (Version 2)
Quarter: 2014Q2

REPORT INFORMATION
  Report Type: Spontaneous
  Country: GB (occurrence: None)
  Receive Date: 20140422
  Receipt Date: 20140528
  Transmission Date: 20141212
  Serious: Yes (Other)
  Sender: FDA-Public Use
  Company Number: AUR-APL-2014-04452

PATIENT
  Age: 56 Year
  Sex: 0

DRUGS (3)
  1. NEVIRAPINE [Suspect]
     Indication: HIV INFECTION
  2. DARUNAVIR [Suspect]
     Indication: HIV INFECTION
     Dates: start: 20100504, end: 20100805
  3. TRUVADA [Suspect]
     Indication: HIV INFECTION

REACTIONS (8)
  - Virologic failure [None]
  - Peripheral swelling [None]
  - Diarrhoea [None]
  - Chromaturia [None]
  - Skin discolouration [None]
  - Insomnia [None]
  - Oedema peripheral [None]
  - Drug ineffective [None]
